FAERS Safety Report 6203836-X (Version None)
Quarter: 2009Q2

REPORT INFORMATION
  Report Type: 
  Country: None (occurrence: None)
  Receive Date: 20090527
  Receipt Date: 20090515
  Transmission Date: 20091009
  Serious: Yes (Hospitalization)
  Sender: FDA-Public Use
  Company Number: TW-PFIZER INC-2009214938

PATIENT
  Age: 65 Year

DRUGS (3)
  1. SUNITINIB MALATE [Suspect]
     Indication: HEPATIC NEOPLASM MALIGNANT
     Dosage: 25 MG, 1X/DAY
     Route: 048
     Dates: start: 20081222, end: 20090430
  2. TAMSULOSIN HYDROCHLORIDE [Concomitant]
     Indication: BENIGN PROSTATIC HYPERPLASIA
     Dosage: 0.2 MG, 2X/DAY
     Dates: start: 20090216
  3. SIMETHICONE [Concomitant]
     Indication: ABDOMINAL DISTENSION
     Dosage: 40 MG, 3X/DAY
     Dates: start: 20081229

REACTIONS (1)
  - HEPATITIS VIRAL [None]
